FAERS Safety Report 8513086-X (Version None)
Quarter: 2012Q3

REPORT INFORMATION
  Report Type: 
  Country: None (occurrence: None)
  Receive Date: 20120705
  Receipt Date: 20120619
  Transmission Date: 20120928
  Serious: Yes (Other)
  Sender: FDA-Public Use
  Company Number: FURO20120006

PATIENT
  Age: 12 Month
  Sex: Male

DRUGS (6)
  1. FUROSEMIDE [Suspect]
     Indication: HYPERTENSION
     Dosage: 0.5 MG/KG/D, UNK
  2. SODIUM POLYSTYRENE SULPHONATE (SODIUM POLYSTYRENE SULFONATE) (SODIUM P [Concomitant]
  3. HYDROCHLOROTHIAZIDE (HYDROCHLOROTHIAZIDE) (HYDROCLOROTHIAZIDE) [Concomitant]
  4. AMLODIPINE [Concomitant]
  5. ATENOLOL [Concomitant]
  6. MISOPROSTOL [Concomitant]

REACTIONS (2)
  - RENAL FAILURE CHRONIC [None]
  - DEHYDRATION [None]
